FAERS Safety Report 11238648 (Version 1)
Quarter: 2015Q3

REPORT INFORMATION
  Report Type: Spontaneous
  Country: US (occurrence: US)
  Receive Date: 20150706
  Receipt Date: 20150706
  Transmission Date: 20151125
  Serious: Yes (Death, Other)
  Sender: FDA-Public Use
  Company Number: PHHY2015US075944

PATIENT
  Age: 47 Year
  Sex: Male

DRUGS (2)
  1. GLEEVEC [Suspect]
     Active Substance: IMATINIB MESYLATE
     Indication: CHORDOMA
     Dosage: 800 MG, QD
     Route: 065
  2. CISPLATIN. [Suspect]
     Active Substance: CISPLATIN
     Indication: CHORDOMA
     Route: 065

REACTIONS (4)
  - Multi-organ failure [Fatal]
  - Oesophageal adenocarcinoma [Unknown]
  - Malignant neoplasm progression [Unknown]
  - Off label use [Unknown]
